FAERS Safety Report 15104714 (Version 2)
Quarter: 2018Q3

REPORT INFORMATION
  Report Type: Spontaneous
  Country: US (occurrence: US)
  Receive Date: 20180703
  Receipt Date: 20180927
  Transmission Date: 20181010
  Serious: No
  Sender: FDA-Public Use
  Company Number: US-BAUSCH-BL-2018-009866

PATIENT
  Age: 71 Year
  Sex: Male

DRUGS (4)
  1. BESIVANCE [Suspect]
     Active Substance: BESIFLOXACIN
     Indication: OFF LABEL USE
     Route: 047
     Dates: start: 20180404, end: 20180413
  2. BESIVANCE [Suspect]
     Active Substance: BESIFLOXACIN
     Indication: INTRAOPERATIVE CARE
     Dosage: IN THE RIGHT EYE
     Route: 047
     Dates: start: 20180401, end: 20180403
  3. DUREZOL [Concomitant]
     Active Substance: DIFLUPREDNATE
     Indication: PRODUCT USED FOR UNKNOWN INDICATION
     Route: 047
     Dates: start: 20180403
  4. PROLENSA [Concomitant]
     Active Substance: BROMFENAC SODIUM
     Indication: PRODUCT USED FOR UNKNOWN INDICATION
     Route: 047
     Dates: start: 20180403

REACTIONS (3)
  - Product quality issue [Recovered/Resolved]
  - Off label use [Recovered/Resolved]
  - Eye discharge [Recovered/Resolved]

NARRATIVE: CASE EVENT DATE: 20180401
